FAERS Safety Report 15383235 (Version 1)
Quarter: 2018Q3

REPORT INFORMATION
  Report Type: Report from Study
  Country: US (occurrence: US)
  Receive Date: 20180913
  Receipt Date: 20180913
  Transmission Date: 20181010
  Serious: Yes (Other)
  Sender: FDA-Public Use
  Company Number: US-SHIRE-US201834506

PATIENT
  Age: 69 Year
  Sex: Male
  Weight: 104.31 kg

DRUGS (1)
  1. CUVITRU [Suspect]
     Active Substance: HUMAN IMMUNOGLOBULIN G
     Indication: IMMUNODEFICIENCY COMMON VARIABLE
     Dosage: UNK, 1X/WEEK (DOSE: 9; UNIT: UNKNOWN)
     Route: 058
     Dates: start: 20180822

REACTIONS (1)
  - Dyspepsia [Recovering/Resolving]

NARRATIVE: CASE EVENT DATE: 20180823
